FAERS Safety Report 9676936 (Version 1)
Quarter: 2013Q4

REPORT INFORMATION
  Report Type: Spontaneous
  Country: US (occurrence: US)
  Receive Date: 20131108
  Receipt Date: 20131108
  Transmission Date: 20140711
  Serious: No
  Sender: FDA-Public Use
  Company Number: US-SA-2013SA102809

PATIENT
  Age: 7 Year
  Sex: Male

DRUGS (2)
  1. ALLEGRA [Suspect]
     Dosage: TAKEN FROM: ABOUT A YEAR AGO
     Route: 048
  2. ALLEGRA [Suspect]
     Route: 048

REACTIONS (2)
  - Vision blurred [Not Recovered/Not Resolved]
  - Disturbance in attention [Not Recovered/Not Resolved]
